FAERS Safety Report 25234248 (Version 3)
Quarter: 2025Q2

REPORT INFORMATION
  Report Type: Spontaneous
  Country: JP (occurrence: JP)
  Receive Date: 20250424
  Receipt Date: 20250625
  Transmission Date: 20250716
  Serious: Yes (Hospitalization, Other)
  Sender: BOEHRINGER INGELHEIM
  Company Number: JP-NBI-2025-BI-023718

PATIENT
  Age: 75 Year
  Sex: Male
  Weight: 61.5 kg

DRUGS (9)
  1. GILOTRIF [Suspect]
     Active Substance: AFATINIB
     Indication: Lung adenocarcinoma
     Dates: start: 20250401, end: 20250422
  2. GILOTRIF [Suspect]
     Active Substance: AFATINIB
     Indication: Human epidermal growth factor receptor positive
  3. VIBRAMYCIN [Suspect]
     Active Substance: DOXYCYCLINE
     Indication: Product used for unknown indication
     Dates: start: 20250401, end: 20250423
  4. DULOXETINE [Concomitant]
     Active Substance: DULOXETINE
     Indication: Product used for unknown indication
     Dates: start: 20250401
  5. ANAMORELIN HYDROCHLORIDE [Concomitant]
     Active Substance: ANAMORELIN HYDROCHLORIDE
     Indication: Product used for unknown indication
     Dates: start: 20250401
  6. MAGNESIUM OXIDE [Concomitant]
     Active Substance: MAGNESIUM OXIDE
     Indication: Product used for unknown indication
  7. ORADOL [Concomitant]
     Indication: Product used for unknown indication
  8. HERBESSER [Concomitant]
     Active Substance: DILTIAZEM HYDROCHLORIDE
     Indication: Product used for unknown indication
  9. OSIMERTINIB [Concomitant]
     Active Substance: OSIMERTINIB
     Indication: Product used for unknown indication

REACTIONS (4)
  - Malignant neoplasm progression [Recovered/Resolved]
  - Hyponatraemia [Recovering/Resolving]
  - Pleural effusion [Recovered/Resolved]
  - Diarrhoea [Recovered/Resolved]

NARRATIVE: CASE EVENT DATE: 20250401
